FAERS Safety Report 9675849 (Version 3)
Quarter: 2014Q2

REPORT INFORMATION
  Report Type: Report from Study
  Country: JP (occurrence: JP)
  Receive Date: 20131107
  Receipt Date: 20140630
  Transmission Date: 20141212
  Serious: Yes (Hospitalization, Other)
  Sender: FDA-Public Use
  Company Number: JP-TAKEDA-2013TUS002030

PATIENT
  Age: 90 Year
  Sex: Male
  Weight: 70 kg

DRUGS (10)
  1. FEBURIC [Suspect]
     Indication: HYPERURICAEMIA
     Dosage: 20 MG, QD
     Route: 048
     Dates: start: 20120804, end: 20121001
  2. FEBURIC [Suspect]
     Dosage: 40 MG, QD
     Route: 048
     Dates: start: 20130219
  3. CADUET [Concomitant]
     Indication: HYPERTENSION
     Dosage: 1 DF, QD
     Route: 048
     Dates: start: 20120804, end: 20130131
  4. PARIET [Concomitant]
     Indication: GASTROOESOPHAGEAL REFLUX DISEASE
     Dosage: 10 MG, QD
     Route: 048
     Dates: start: 20120804
  5. PLAVIX [Concomitant]
     Indication: CEREBRAL INFARCTION
     Dosage: 75 MG, QD
     Route: 048
     Dates: start: 20120804
  6. MICARDIS [Concomitant]
     Indication: HYPERTENSION
     Dosage: 80 MG, QD
     Route: 048
     Dates: start: 20120804, end: 20130131
  7. HARNAL [Concomitant]
     Indication: BENIGN PROSTATIC HYPERPLASIA
     Dosage: 0.2 MG, QD
     Route: 048
     Dates: start: 20120804, end: 20130131
  8. SUNRYTHM [Concomitant]
     Indication: VENTRICULAR EXTRASYSTOLES
     Dosage: 100 MG, QD
     Route: 048
     Dates: start: 20120804
  9. DIART [Concomitant]
     Indication: CARDIAC FAILURE CONGESTIVE
     Dosage: 30 MG, QD
     Route: 048
     Dates: start: 20130322
  10. AIMIX [Concomitant]
     Indication: HYPERTENSION
     Dosage: 1 DF, QD
     Route: 048
     Dates: start: 20130219

REACTIONS (3)
  - Meningitis bacterial [Recovered/Resolved]
  - Sepsis [Recovered/Resolved]
  - Blood pressure increased [Recovered/Resolved]
